FAERS Safety Report 13303434 (Version 1)
Quarter: 2017Q1

REPORT INFORMATION
  Report Type: Spontaneous
  Country: BE (occurrence: BE)
  Receive Date: 20170307
  Receipt Date: 20170307
  Transmission Date: 20170428
  Serious: Yes (Other)
  Sender: FDA-Public Use
  Company Number: BE-ELI_LILLY_AND_COMPANY-BE201702008627

PATIENT
  Age: 45 Year
  Sex: Male

DRUGS (3)
  1. ZYPREXA [Suspect]
     Active Substance: OLANZAPINE
     Indication: PRODUCT USED FOR UNKNOWN INDICATION
     Dosage: 10 MG, UNKNOWN
     Route: 065
  2. XEPLION [Concomitant]
     Active Substance: PALIPERIDONE PALMITATE
  3. LEPONEX [Concomitant]
     Active Substance: CLOZAPINE

REACTIONS (2)
  - Guillain-Barre syndrome [Unknown]
  - Muscular weakness [Unknown]
